FAERS Safety Report 6712161-X (Version None)
Quarter: 2010Q2

REPORT INFORMATION
  Report Type: 
  Country: None (occurrence: None)
  Receive Date: 20100505
  Receipt Date: 20100429
  Transmission Date: 20101027
  Serious: Yes (Hospitalization)
  Sender: FDA-Public Use
  Company Number: PT-ROCHE-684122

PATIENT
  Sex: Female
  Weight: 85 kg

DRUGS (7)
  1. TOCILIZUMAB [Suspect]
     Indication: RHEUMATOID ARTHRITIS
     Dosage: FORM: PERFUSION. DATE OF LAST DOSE PRIOR TO SAE: 15 JAN 2010. TEMPORARILY INTERRUPTED
     Route: 042
     Dates: start: 20090325, end: 20100201
  2. TOCILIZUMAB [Suspect]
     Dosage: MA21573
     Route: 042
  3. PREDNISOLONE [Concomitant]
     Dates: start: 20040101
  4. METHOTREXATE [Concomitant]
     Dosage: TDD: 20 MG ONCE WEEK
     Dates: start: 20040101
  5. FOLIC ACID [Concomitant]
     Dosage: TDD: 5 MG ONCE WEEK
     Dates: start: 20040101
  6. ATORVASTATIN [Concomitant]
     Dates: start: 20090617
  7. CARBONATE CALCIUM [Concomitant]
     Dates: start: 20040101

REACTIONS (1)
  - ATRIAL FLUTTER [None]
